FAERS Safety Report 25306886 (Version 1)
Quarter: 2025Q2

REPORT INFORMATION
  Report Type: Spontaneous
  Country: US (occurrence: None)
  Receive Date: 20250509
  Receipt Date: 20250509
  Transmission Date: 20250717
  Serious: Yes (Hospitalization)
  Sender: FDA-CTU
  Company Number: None

PATIENT
  Age: 74 Year
  Sex: Male
  Weight: 3 kg

DRUGS (1)
  1. ROCEPHIN [Suspect]
     Active Substance: CEFTRIAXONE SODIUM

REACTIONS (4)
  - Rash [None]
  - Hypertransaminasaemia [None]
  - Hyperbilirubinaemia [None]
  - Escherichia test positive [None]

NARRATIVE: CASE EVENT DATE: 20250502
